FAERS Safety Report 12606558 (Version 4)
Quarter: 2018Q3

REPORT INFORMATION
  Report Type: Spontaneous
  Country: US (occurrence: US)
  Receive Date: 20160729
  Receipt Date: 20180806
  Transmission Date: 20181010
  Serious: Yes (Hospitalization, Other)
  Sender: FDA-Public Use
  Company Number: US-009507513-1607USA010894

PATIENT
  Sex: Female
  Weight: 79.37 kg

DRUGS (2)
  1. NUVARING [Suspect]
     Active Substance: ETHINYL ESTRADIOL\ETONOGESTREL
     Indication: CONTRACEPTION
     Dosage: UNK
     Route: 067
     Dates: start: 20130315, end: 201407
  2. NORCO [Suspect]
     Active Substance: ACETAMINOPHEN\HYDROCODONE BITARTRATE

REACTIONS (18)
  - Leukocytosis [Recovering/Resolving]
  - Dysmenorrhoea [Unknown]
  - Chest pain [Recovering/Resolving]
  - Pelvic pain [Unknown]
  - Gastrectomy [Unknown]
  - Maternal exposure before pregnancy [Recovered/Resolved]
  - Peripheral swelling [Unknown]
  - Anxiety [Unknown]
  - Pain [Unknown]
  - Abortion induced [Recovered/Resolved]
  - Nicotine dependence [Recovered/Resolved]
  - Oral herpes [Unknown]
  - Pulmonary embolism [Recovered/Resolved]
  - Pain in extremity [Recovering/Resolving]
  - Cardiomegaly [Unknown]
  - Embedded device [Unknown]
  - Pulmonary infarction [Unknown]
  - Aphthous ulcer [Unknown]

NARRATIVE: CASE EVENT DATE: 201311
